FAERS Safety Report 11754815 (Version 1)
Quarter: 2015Q4

REPORT INFORMATION
  Report Type: Spontaneous
  Country: US (occurrence: None)
  Receive Date: 20151118
  Receipt Date: 20151118
  Transmission Date: 20160304
  Serious: Yes (Hospitalization)
  Sender: FDA-Public Use
  Company Number: None

PATIENT
  Age: 14 Year
  Sex: Female
  Weight: 46.72 kg

DRUGS (1)
  1. NEXPLANON [Suspect]
     Active Substance: ETONOGESTREL
     Indication: CONTRACEPTION
     Dosage: 68MG 3 YEARS GIVEN INTO/UNDER THE SKIN
     Dates: start: 20150515, end: 20151117

REACTIONS (8)
  - Crying [None]
  - Educational problem [None]
  - Depression [None]
  - Anxiety [None]
  - Mood swings [None]
  - Emotional disorder [None]
  - Overdose [None]
  - Suicide attempt [None]

NARRATIVE: CASE EVENT DATE: 20151101
